FAERS Safety Report 25339832 (Version 1)
Quarter: 2025Q2

REPORT INFORMATION
  Report Type: 
  Country: AU (occurrence: AU)
  Receive Date: 20250521
  Receipt Date: 20250521
  Transmission Date: 20250717
  Serious: Yes (Other)
  Sender: CELLTRION
  Company Number: AU-CELLTRION INC.-2025AU014886

PATIENT

DRUGS (5)
  1. ADALIMUMAB [Suspect]
     Active Substance: ADALIMUMAB
     Indication: Product used for unknown indication
  2. BETAMETHASONE DIPROPIONATE [Concomitant]
     Active Substance: BETAMETHASONE DIPROPIONATE
  3. MYCOPHENOLIC ACID [Concomitant]
     Active Substance: MYCOPHENOLIC ACID
  4. POTASSIUM PERMANGANATE [Concomitant]
     Active Substance: POTASSIUM PERMANGANATE
  5. PREDNISOLONE [Concomitant]
     Active Substance: PREDNISOLONE

REACTIONS (4)
  - Pyoderma gangrenosum [Unknown]
  - Wound infection pseudomonas [Unknown]
  - Disease progression [Unknown]
  - Off label use [Unknown]
